FAERS Safety Report 24694881 (Version 1)
Quarter: 2024Q4

REPORT INFORMATION
  Report Type: Spontaneous
  Country: US (occurrence: None)
  Receive Date: 20241203
  Receipt Date: 20241203
  Transmission Date: 20250115
  Serious: Yes (unspecified)
  Sender: Public
  Company Number: None

PATIENT
  Age: 78 Year
  Sex: Female
  Weight: 64.8 kg

DRUGS (2)
  1. LEQEMBI [Suspect]
     Active Substance: LECANEMAB-IRMB
     Indication: Dementia Alzheimer^s type
     Dosage: 2 ML Q TWO WEEKS INTRAVENOUS DRIP?
     Route: 041
     Dates: start: 20241203, end: 20241203
  2. LEQEMBI [Suspect]
     Active Substance: LECANEMAB-IRMB
     Indication: Dementia Alzheimer^s type
     Dosage: 650 MG Q 2 WEEKS INTRAVENOUS
     Route: 042
     Dates: start: 20241203, end: 20241203

REACTIONS (6)
  - Nausea [None]
  - Vomiting [None]
  - Anxiety [None]
  - Headache [None]
  - Blood pressure increased [None]
  - Infusion related reaction [None]

NARRATIVE: CASE EVENT DATE: 20241203
